FAERS Safety Report 5309838-X (Version None)
Quarter: 2007Q2

REPORT INFORMATION
  Report Type: 
  Country: None (occurrence: None)
  Receive Date: 20070427
  Receipt Date: 20070420
  Transmission Date: 20071010
  Serious: Yes (Hospitalization)
  Sender: FDA-Public Use
  Company Number: US-AMGEN-STX196958

PATIENT
  Sex: Female
  Weight: 47.2 kg

DRUGS (11)
  1. ENBREL [Suspect]
     Indication: RHEUMATOID ARTHRITIS
     Route: 058
     Dates: start: 20030101
  2. PREDNISONE TAB [Concomitant]
     Route: 065
  3. ARAVA [Concomitant]
     Route: 065
  4. ARAVA [Concomitant]
     Route: 065
  5. ACTONEL [Concomitant]
     Route: 065
  6. ATENOLOL [Concomitant]
     Route: 065
  7. DIOVAN [Concomitant]
     Route: 065
  8. CELEBREX [Concomitant]
     Route: 065
  9. NORVASC [Concomitant]
     Route: 065
  10. ZANTAC [Concomitant]
     Route: 065
  11. YEAST DRIED [Concomitant]
     Route: 048

REACTIONS (2)
  - JOINT ARTHROPLASTY [None]
  - PAIN IN EXTREMITY [None]
